FAERS Safety Report 7515636-9 (Version None)
Quarter: 2011Q2

REPORT INFORMATION
  Report Type: 
  Country: None (occurrence: None)
  Receive Date: 20110601
  Receipt Date: 20110518
  Transmission Date: 20111010
  Serious: Yes (Hospitalization)
  Sender: FDA-Public Use
  Company Number: JP-ACTELION-A-CH2011-46600

PATIENT
  Sex: Male
  Weight: 48 kg

DRUGS (10)
  1. TORSEMIDE [Concomitant]
  2. FUROSEMIDE [Concomitant]
  3. LACTULOSE [Concomitant]
  4. SPIRONOLACTONE [Concomitant]
  5. TRACLEER [Suspect]
     Indication: PULMONARY ARTERIAL HYPERTENSION
     Dosage: 62.5 MG, QD
     Route: 048
     Dates: start: 20110112, end: 20110125
  6. BERAPROST SODIUM [Suspect]
  7. TEPRENONE [Concomitant]
  8. LACTOMIN [Concomitant]
  9. OLMESARTAN MEDOXOMIL [Concomitant]
  10. MECOBALAMIN [Concomitant]

REACTIONS (5)
  - NAUSEA [None]
  - ABDOMINAL CAVITY DRAINAGE [None]
  - PLATELET COUNT DECREASED [None]
  - OEDEMA [None]
  - ASCITES [None]
